FAERS Safety Report 25329851 (Version 1)
Quarter: 2025Q2

REPORT INFORMATION
  Report Type: Spontaneous
  Country: US (occurrence: US)
  Receive Date: 20250519
  Receipt Date: 20250519
  Transmission Date: 20250717
  Serious: No
  Sender: DR REDDYS
  Company Number: None

PATIENT
  Age: 71 Year
  Sex: Male

DRUGS (25)
  1. DOCETAXEL [Suspect]
     Active Substance: DOCETAXEL
     Indication: Prostate cancer metastatic
     Dosage: DOCETAXEL (75MG/M2 OF BODY SURFACE AREA ON DAY 1 AND EVERY 21 DAYS) FOR SIX CYCLES
     Dates: start: 2023
  2. DOCETAXEL [Suspect]
     Active Substance: DOCETAXEL
     Indication: Metastases to central nervous system
  3. DOCETAXEL [Suspect]
     Active Substance: DOCETAXEL
     Indication: Metastases to bone
  4. DOCETAXEL [Suspect]
     Active Substance: DOCETAXEL
     Indication: Metastases to lymph nodes
  5. DOCETAXEL [Suspect]
     Active Substance: DOCETAXEL
     Indication: Hormone-refractory prostate cancer
  6. DAROLUTAMIDE [Suspect]
     Active Substance: DAROLUTAMIDE
     Indication: Prostate cancer metastatic
     Dates: start: 2023
  7. DAROLUTAMIDE [Suspect]
     Active Substance: DAROLUTAMIDE
     Indication: Metastases to central nervous system
  8. DAROLUTAMIDE [Suspect]
     Active Substance: DAROLUTAMIDE
     Indication: Metastases to bone
  9. DAROLUTAMIDE [Suspect]
     Active Substance: DAROLUTAMIDE
     Indication: Metastases to lymph nodes
  10. DAROLUTAMIDE [Suspect]
     Active Substance: DAROLUTAMIDE
     Indication: Hormone-refractory prostate cancer
  11. RELUGOLIX [Suspect]
     Active Substance: RELUGOLIX
     Indication: Prostate cancer metastatic
     Dates: start: 2023
  12. RELUGOLIX [Suspect]
     Active Substance: RELUGOLIX
     Indication: Metastases to central nervous system
  13. RELUGOLIX [Suspect]
     Active Substance: RELUGOLIX
     Indication: Metastases to bone
  14. RELUGOLIX [Suspect]
     Active Substance: RELUGOLIX
     Indication: Metastases to lymph nodes
  15. RELUGOLIX [Suspect]
     Active Substance: RELUGOLIX
     Indication: Hormone-refractory prostate cancer
  16. PREDNISONE [Concomitant]
     Active Substance: PREDNISONE
     Indication: Prostate cancer metastatic
     Dates: start: 2023
  17. PREDNISONE [Concomitant]
     Active Substance: PREDNISONE
     Indication: Metastases to central nervous system
  18. PREDNISONE [Concomitant]
     Active Substance: PREDNISONE
     Indication: Metastases to bone
  19. PREDNISONE [Concomitant]
     Active Substance: PREDNISONE
     Indication: Metastases to lymph nodes
  20. PREDNISONE [Concomitant]
     Active Substance: PREDNISONE
     Indication: Hormone-refractory prostate cancer
  21. DENOSUMAB [Concomitant]
     Active Substance: DENOSUMAB
     Indication: Prostate cancer metastatic
     Dates: start: 2023
  22. DENOSUMAB [Concomitant]
     Active Substance: DENOSUMAB
     Indication: Metastases to central nervous system
  23. DENOSUMAB [Concomitant]
     Active Substance: DENOSUMAB
     Indication: Metastases to bone
  24. DENOSUMAB [Concomitant]
     Active Substance: DENOSUMAB
     Indication: Metastases to lymph nodes
  25. DENOSUMAB [Concomitant]
     Active Substance: DENOSUMAB
     Indication: Hormone-refractory prostate cancer

REACTIONS (1)
  - Diarrhoea [Recovered/Resolved]

NARRATIVE: CASE EVENT DATE: 20230101
